FAERS Safety Report 12319918 (Version 1)
Quarter: 2016Q2

REPORT INFORMATION
  Report Type: Spontaneous
  Country: US (occurrence: US)
  Receive Date: 20160429
  Receipt Date: 20160429
  Transmission Date: 20160815
  Serious: No
  Sender: FDA-Public Use
  Company Number: US-ROCHE-1695179

PATIENT
  Age: 44 Year
  Sex: Female

DRUGS (1)
  1. AVASTIN [Suspect]
     Active Substance: BEVACIZUMAB
     Indication: PRODUCT USED FOR UNKNOWN INDICATION
     Route: 065

REACTIONS (7)
  - Skin texture abnormal [Unknown]
  - Stomatitis [Unknown]
  - Tooth disorder [Unknown]
  - Gingival disorder [Unknown]
  - Oral pain [Unknown]
  - Noninfective gingivitis [Unknown]
  - Burning sensation [Unknown]
